FAERS Safety Report 21476428 (Version 1)
Quarter: 2022Q4

REPORT INFORMATION
  Report Type: Spontaneous
  Country: GB (occurrence: GB)
  Receive Date: 20221019
  Receipt Date: 20221019
  Transmission Date: 20230113
  Serious: Yes (Hospitalization, Other)
  Sender: FDA-Public Use
  Company Number: GB-PFIZER INC-202201218587

PATIENT
  Age: 20 Year
  Sex: Female

DRUGS (1)
  1. SULFASALAZINE [Suspect]
     Active Substance: SULFASALAZINE
     Dosage: 3 G, DAILY

REACTIONS (3)
  - Anaemia folate deficiency [Recovering/Resolving]
  - Pancytopenia [Recovering/Resolving]
  - Drug hypersensitivity [Recovering/Resolving]
